FAERS Safety Report 7013773-9 (Version None)
Quarter: 2010Q3

REPORT INFORMATION
  Report Type: 
  Country: None (occurrence: None)
  Receive Date: 20100924
  Receipt Date: 20100916
  Transmission Date: 20110219
  Serious: Yes (Death)
  Sender: FDA-Public Use
  Company Number: US-AMGEN-QUU438907

PATIENT
  Sex: Female

DRUGS (4)
  1. NPLATE [Suspect]
     Indication: IDIOPATHIC THROMBOCYTOPENIC PURPURA
     Dates: start: 20100303, end: 20100303
  2. CORTICOSTEROIDS [Concomitant]
     Dates: start: 20100226
  3. IMMU-G [Concomitant]
     Dates: start: 20100226
  4. RITUXIMAB [Concomitant]
     Dates: start: 20100301

REACTIONS (2)
  - HAEMORRHAGE INTRACRANIAL [None]
  - THROMBOCYTOPENIA [None]
